FAERS Safety Report 5528705-X (Version None)
Quarter: 2007Q4

REPORT INFORMATION
  Report Type: 
  Country: None (occurrence: None)
  Receive Date: 20071129
  Receipt Date: 20071119
  Transmission Date: 20080405
  Serious: Yes (Hospitalization)
  Sender: FDA-Public Use
  Company Number: US-BRISTOL-MYERS SQUIBB COMPANY-13987060

PATIENT
  Age: 59 Year
  Sex: Male
  Weight: 55 kg

DRUGS (2)
  1. CISPLATIN [Suspect]
     Indication: LARYNGEAL CANCER
     Dosage: 100MG/M2
     Route: 042
     Dates: start: 20071010, end: 20071010
  2. RADIATION THERAPY [Suspect]
     Indication: SQUAMOUS CELL CARCINOMA
     Dates: start: 20070901, end: 20071001

REACTIONS (8)
  - DEHYDRATION [None]
  - DYSPHAGIA [None]
  - HYPOKALAEMIA [None]
  - PNEUMONIA [None]
  - RADIATION SKIN INJURY [None]
  - SEPSIS [None]
  - STOMATITIS [None]
  - SYNCOPE [None]
